FAERS Safety Report 9689553 (Version 2)
Quarter: 2014Q1

REPORT INFORMATION
  Report Type: Report from Study
  Country: CH (occurrence: CH)
  Receive Date: 20131115
  Receipt Date: 20140303
  Transmission Date: 20141002
  Serious: Yes (Death)
  Sender: FDA-Public Use
  Company Number: CH-ROCHE-1300172

PATIENT
  Age: 72 Year
  Sex: Male

DRUGS (2)
  1. BEVACIZUMAB [Suspect]
     Indication: BRAIN NEOPLASM MALIGNANT
     Route: 042
     Dates: start: 20130506, end: 20130731
  2. DEXAMETHASONE [Concomitant]
     Indication: BRAIN OEDEMA
     Route: 065
     Dates: start: 20130513

REACTIONS (1)
  - General physical health deterioration [Fatal]
